FAERS Safety Report 6230695-1 (Version None)
Quarter: 2009Q2

REPORT INFORMATION
  Report Type: 
  Country: None (occurrence: None)
  Receive Date: 20090611
  Receipt Date: 20090611
  Transmission Date: 20091009
  Serious: Yes (Hospitalization, Disabling)
  Sender: FDA-Public Use
  Company Number: None

PATIENT
  Age: 27 Year
  Sex: Female
  Weight: 52.1637 kg

DRUGS (1)
  1. HOLLISTER STIER-SERUM ALLERGIES [Suspect]
     Indication: MULTIPLE ALLERGIES
     Dosage: VARIES 1:5,000, 1:1000, 1:500 1:100 FROM .01 TO .3 ML SHOT INJECTION
     Dates: start: 20090301, end: 20090520

REACTIONS (8)
  - BLISTER [None]
  - BURNING SENSATION [None]
  - ERYTHEMA [None]
  - INJECTION SITE REACTION [None]
  - PURPURA [None]
  - SKIN DISCOLOURATION [None]
  - SKIN IRRITATION [None]
  - SWELLING [None]
